FAERS Safety Report 8257056-8 (Version None)
Quarter: 2012Q2

REPORT INFORMATION
  Report Type: 
  Country: None (occurrence: None)
  Receive Date: 20120403
  Receipt Date: 20120327
  Transmission Date: 20120825
  Serious: Yes (Hospitalization)
  Sender: FDA-Public Use
  Company Number: DK-GLAXOSMITHKLINE-B0789215A

PATIENT

DRUGS (13)
  1. HEPARIN [Suspect]
     Indication: PRODUCT USED FOR UNKNOWN INDICATION
     Route: 065
  2. FUROSEMIDE [Concomitant]
     Indication: DIURETIC THERAPY
     Dosage: 40MG TWICE PER DAY
  3. ATORVASTATIN CALCIUM [Concomitant]
     Indication: BLOOD CHOLESTEROL INCREASED
     Dosage: 10MG PER DAY
  4. SPIRONOLACTONE [Concomitant]
     Indication: DIURETIC THERAPY
     Dosage: 25MG PER DAY
  5. TRANDOLAPRIL [Concomitant]
     Indication: HYPERTENSION
     Dosage: 2MG TWICE PER DAY
  6. POTASSIUM CHLORIDE [Concomitant]
     Dosage: 750MG PER DAY
  7. INSULIN [Concomitant]
  8. METFORMIN HCL [Concomitant]
     Indication: DIABETES MELLITUS
     Dosage: 500MG TWICE PER DAY
  9. WARFARIN SODIUM [Concomitant]
     Dosage: 2.5MG PER DAY
  10. METHIMAZOLE [Concomitant]
     Indication: HYPERTENSION
     Dosage: 5MG PER DAY
  11. VOTRIENT [Suspect]
     Indication: PRODUCT USED FOR UNKNOWN INDICATION
     Dosage: 800MG PER DAY
     Route: 065
     Dates: start: 20111123
  12. MAGNYL [Concomitant]
     Dosage: 75MG PER DAY
  13. VITAMIN B-12 [Concomitant]
     Dosage: 1MG PER DAY

REACTIONS (1)
  - BLISTER [None]
